FAERS Safety Report 23998815 (Version 4)
Quarter: 2024Q3

REPORT INFORMATION
  Report Type: Spontaneous
  Country: US (occurrence: US)
  Receive Date: 20240621
  Receipt Date: 20240805
  Transmission Date: 20241017
  Serious: No
  Sender: JOHNSON AND JOHNSON
  Company Number: US-JNJFOC-20240649185

PATIENT
  Age: 32 Year

DRUGS (2)
  1. SPRAVATO [Suspect]
     Active Substance: ESKETAMINE
     Indication: Major depression
     Dates: start: 20231107
  2. SPRAVATO [Suspect]
     Active Substance: ESKETAMINE
     Dates: start: 20231117

REACTIONS (4)
  - Device malfunction [Unknown]
  - Product delivery mechanism issue [Unknown]
  - Syringe issue [Unknown]
  - Incorrect dose administered by device [Unknown]

NARRATIVE: CASE EVENT DATE: 20240610
